FAERS Safety Report 9837483 (Version 1)
Quarter: 2014Q1

REPORT INFORMATION
  Report Type: Spontaneous
  Country: US (occurrence: None)
  Receive Date: 20140117
  Receipt Date: 20140117
  Transmission Date: 20141002
  Serious: Yes (Other)
  Sender: FDA-Public Use
  Company Number: None

PATIENT
  Age: 79 Year
  Sex: Female
  Weight: 68.04 kg

DRUGS (8)
  1. GABAPENTIN 300 MG [Suspect]
     Indication: URTICARIA
     Dosage: I TOOK ONLY ONE AT BEDTIME
     Route: 048
     Dates: start: 20131015, end: 20131021
  2. SERTRALINE HCL [Concomitant]
  3. L-THYROXINE [Concomitant]
  4. ZAFIRLUKAST [Concomitant]
  5. LATANOPROST 0.005 % OPHTHALMIC SOLUTION [Concomitant]
  6. CENTRUM ADULTS [Concomitant]
  7. CVS CALCIUM +D [Concomitant]
  8. NORDIC NATURALS PROOMEGA [Concomitant]

REACTIONS (2)
  - Haemorrhage [None]
  - Product substitution issue [None]
